FAERS Safety Report 10743924 (Version 2)
Quarter: 2015Q1

REPORT INFORMATION
  Report Type: Report from Study
  Country: US (occurrence: US)
  Receive Date: 20150128
  Receipt Date: 20150228
  Transmission Date: 20150721
  Serious: Yes (Other)
  Sender: FDA-Public Use
  Company Number: US-BIOGENIDEC-2015BI009766

PATIENT
  Age: 57 Year
  Sex: Female
  Weight: 67 kg

DRUGS (26)
  1. ZANAFLEX [Concomitant]
     Active Substance: TIZANIDINE HYDROCHLORIDE
     Route: 048
  2. VALTREX [Concomitant]
     Active Substance: VALACYCLOVIR HYDROCHLORIDE
     Route: 048
  3. OXYCONTIN [Concomitant]
     Active Substance: OXYCODONE HYDROCHLORIDE
     Route: 048
  4. AVONEX [Suspect]
     Active Substance: INTERFERON BETA-1A
     Indication: MULTIPLE SCLEROSIS
     Route: 030
     Dates: start: 20030416, end: 20140619
  5. MILK THISTLE [Concomitant]
     Active Substance: MILK THISTLE
     Route: 048
  6. ULTRAM [Concomitant]
     Active Substance: TRAMADOL HYDROCHLORIDE
     Route: 048
  7. AVONEX [Suspect]
     Active Substance: INTERFERON BETA-1A
     Indication: MULTIPLE SCLEROSIS
     Route: 030
     Dates: end: 20150112
  8. PREVACID [Concomitant]
     Active Substance: LANSOPRAZOLE
     Route: 048
  9. AMITIZA [Concomitant]
     Active Substance: LUBIPROSTONE
     Route: 048
  10. METOPROLOL TARTRATE. [Concomitant]
     Active Substance: METOPROLOL TARTRATE
     Route: 048
  11. CLOBEX [Concomitant]
     Active Substance: CLOBETASOL PROPIONATE
     Route: 061
  12. WELLBUTRIN SR [Concomitant]
     Active Substance: BUPROPION HYDROCHLORIDE
     Route: 048
  13. AVONEX [Suspect]
     Active Substance: INTERFERON BETA-1A
     Indication: MULTIPLE SCLEROSIS
     Route: 030
     Dates: start: 19960717, end: 20030316
  14. BACLOFEN. [Concomitant]
     Active Substance: BACLOFEN
     Route: 048
  15. EX LAX [Concomitant]
     Route: 048
  16. NAPROXEN. [Concomitant]
     Active Substance: NAPROXEN
     Route: 048
  17. ASPIRIN. [Concomitant]
     Active Substance: ASPIRIN
     Route: 048
  18. EFFIENT [Concomitant]
     Active Substance: PRASUGREL HYDROCHLORIDE
     Route: 048
  19. NEURONTIN [Concomitant]
     Active Substance: GABAPENTIN
     Route: 048
  20. NORCO [Concomitant]
     Active Substance: ACETAMINOPHEN\HYDROCODONE BITARTRATE
     Route: 048
  21. NUVIGIL [Concomitant]
     Active Substance: ARMODAFINIL
     Indication: FATIGUE
     Route: 048
  22. VITAMIN B12 [Concomitant]
     Active Substance: CYANOCOBALAMIN
     Route: 048
  23. PROMETHAZINE [Concomitant]
     Active Substance: PROMETHAZINE\PROMETHAZINE HYDROCHLORIDE
     Route: 048
  24. LIVALO [Concomitant]
     Active Substance: PITAVASTATIN CALCIUM
     Route: 048
  25. FLEXERIL [Concomitant]
     Active Substance: CYCLOBENZAPRINE HYDROCHLORIDE
     Route: 048
  26. SALEX [Concomitant]
     Active Substance: SALICYLIC ACID
     Route: 061

REACTIONS (3)
  - Chest pain [Unknown]
  - Coronary artery disease [Unknown]
  - Influenza like illness [Unknown]

NARRATIVE: CASE EVENT DATE: 201304
